FAERS Safety Report 11992730 (Version 1)
Quarter: 2016Q1

REPORT INFORMATION
  Report Type: Spontaneous
  Country: US (occurrence: None)
  Receive Date: 20160202
  Receipt Date: 20160202
  Transmission Date: 20160526
  Serious: Yes (Death)
  Sender: FDA-Public Use
  Company Number: None

PATIENT
  Age: 20 Year
  Sex: Male

DRUGS (1)
  1. HUMIRA [Suspect]
     Active Substance: ADALIMUMAB
     Indication: COLITIS
     Dosage: 40MG TWICE A MONTH  SUBCUTANEOUSLY
     Route: 058
     Dates: start: 20120719, end: 20160121

REACTIONS (1)
  - Death [None]

NARRATIVE: CASE EVENT DATE: 20160121
